FAERS Safety Report 13164323 (Version 2)
Quarter: 2017Q1

REPORT INFORMATION
  Report Type: Spontaneous
  Country: FR (occurrence: FR)
  Receive Date: 20170130
  Receipt Date: 20170211
  Transmission Date: 20170428
  Serious: Yes (Death)
  Sender: FDA-Public Use
  Company Number: FR-MERCK KGAA-1062521

PATIENT
  Age: 94 Year
  Sex: Female

DRUGS (20)
  1. KARDEGIC [Suspect]
     Active Substance: ASPIRIN LYSINE
     Route: 048
  2. ZYPREXA [Suspect]
     Active Substance: OLANZAPINE
     Route: 048
  3. COLOPEG [Concomitant]
     Active Substance: POLYETHYLENE GLYCOL 3350\POTASSIUM CHLORIDE\SODIUM BICARBONATE\SODIUM CHLORIDE\SODIUM SULFATE
  4. NOVOTHYROX [Suspect]
     Active Substance: LEVOTHYROXINE SODIUM
     Route: 048
  5. FORLAX [Concomitant]
     Active Substance: POLYETHYLENE GLYCOL 4000
  6. XENETIX [Concomitant]
     Active Substance: IOBITRIDOL
     Dates: start: 2011
  7. TAMSULOSINE [Suspect]
     Active Substance: TAMSULOSIN HYDROCHLORIDE
     Route: 048
  8. SERESTA [Suspect]
     Active Substance: OXAZEPAM
     Route: 048
  9. DAFALGAN [Concomitant]
     Active Substance: ACETAMINOPHEN
  10. NOVOTHYROX [Suspect]
     Active Substance: LEVOTHYROXINE SODIUM
  11. VISIPAQUE [Suspect]
     Active Substance: IODIXANOL
     Route: 042
     Dates: start: 20150429, end: 20150429
  12. UVEDOSE [Concomitant]
     Active Substance: CHOLECALCIFEROL
  13. ULTRAVIST [Concomitant]
     Active Substance: IOPROMIDE
     Dates: start: 2014
  14. NOVOTHYROX [Suspect]
     Active Substance: LEVOTHYROXINE SODIUM
     Indication: OROPHARYNGEAL CANCER
     Route: 048
  15. LOXEN [Suspect]
     Active Substance: NICARDIPINE HYDROCHLORIDE
     Route: 048
  16. LASILIX [Concomitant]
     Active Substance: FUROSEMIDE
  17. ACEBUTOLOL HYDROCHLORIDE. [Suspect]
     Active Substance: ACEBUTOLOL HYDROCHLORIDE
     Route: 048
  18. NORMACOL [Suspect]
     Active Substance: KARAYA GUM
     Route: 054
  19. MIANSERINE [Concomitant]
     Active Substance: MIANSERIN HYDROCHLORIDE
  20. IOMEPROL [Concomitant]
     Active Substance: IOMEPROL
     Dates: start: 2012

REACTIONS (1)
  - Dyspnoea [Fatal]

NARRATIVE: CASE EVENT DATE: 20150429
